FAERS Safety Report 15539164 (Version 1)
Quarter: 2018Q4

REPORT INFORMATION
  Report Type: Spontaneous
  Country: IT (occurrence: IT)
  Receive Date: 20181022
  Receipt Date: 20181022
  Transmission Date: 20190205
  Serious: Yes (Other)
  Sender: FDA-Public Use
  Company Number: IT-EX USA HOLDINGS-EXHL20180600

PATIENT
  Age: 41 Year
  Sex: Male

DRUGS (2)
  1. CYPROTERONE ACETATE [Suspect]
     Active Substance: CYPROTERONE ACETATE
     Indication: TRANSGENDER HORMONAL THERAPY
     Dosage: 50 MG
     Route: 065
  2. ESTRADIOL HEMIHYDRATE [Suspect]
     Active Substance: ESTRADIOL HEMIHYDRATE
     Indication: TRANSGENDER HORMONAL THERAPY
     Dosage: 1 MG UP TO 3 MG
     Route: 065

REACTIONS (4)
  - Meningioma [Recovered/Resolved]
  - Reading disorder [Recovered/Resolved]
  - Product use in unapproved indication [None]
  - Prosopagnosia [Recovered/Resolved]
